FAERS Safety Report 13327065 (Version 3)
Quarter: 2017Q2

REPORT INFORMATION
  Report Type: Spontaneous
  Country: US (occurrence: US)
  Receive Date: 20170313
  Receipt Date: 20170425
  Transmission Date: 20170830
  Serious: Yes (Other)
  Sender: FDA-Public Use
  Company Number: US-009507513-1703USA004678

PATIENT
  Age: 61 Year
  Sex: Male

DRUGS (4)
  1. HYDROCODONE [Concomitant]
     Active Substance: HYDROCODONE
     Indication: INTERVERTEBRAL DISC DEGENERATION
  2. PREDNISONE. [Suspect]
     Active Substance: PREDNISONE
     Indication: LUNG ADENOCARCINOMA STAGE IV
     Dosage: UNK, PLAN FOR LONG TAPER
  3. HEXADROL [Suspect]
     Active Substance: DEXAMETHASONE
     Indication: LUNG ADENOCARCINOMA STAGE IV
     Dosage: UNK
  4. CRIZOTINIB [Concomitant]
     Active Substance: CRIZOTINIB
     Indication: LUNG ADENOCARCINOMA STAGE IV

REACTIONS (1)
  - Substance-induced psychotic disorder [Unknown]
